FAERS Safety Report 7583424-3 (Version None)
Quarter: 2011Q2

REPORT INFORMATION
  Report Type: 
  Country: None (occurrence: None)
  Receive Date: 20110630
  Receipt Date: 20110614
  Transmission Date: 20111010
  Serious: No
  Sender: FDA-Public Use
  Company Number: US-B.I. PHARMACEUTICALS,INC./RIDGEFIELD-2011-BP-08777BP

PATIENT
  Sex: Female
  Weight: 97.98 kg

DRUGS (12)
  1. METOPROLOL TARTRATE [Concomitant]
     Dosage: 25 MG
  2. TERCONAZOLE [Concomitant]
  3. PRADAXA [Suspect]
     Indication: ATRIAL FIBRILLATION
     Dosage: 300 MG
     Route: 048
     Dates: start: 20110207
  4. CLONIDINE [Concomitant]
     Dosage: 0.1 MG
  5. DOXEPIN [Concomitant]
     Dosage: 50 MG
  6. TRIAMCINOLONE ACETONIDE [Concomitant]
  7. ASPIRIN [Concomitant]
     Dosage: 81 MG
  8. PRILOSEC OTC [Concomitant]
     Dosage: 20 MG
  9. SIMVASTATIN [Concomitant]
     Dosage: 40 MG
  10. ALBUTEROL SULFATE AUTOHALER [Concomitant]
     Route: 055
  11. AMLODIPINE [Concomitant]
     Dosage: 5 MG
  12. LOSARTAIN/HCT [Concomitant]

REACTIONS (4)
  - ABDOMINAL PAIN UPPER [None]
  - HEART RATE INCREASED [None]
  - FEELING ABNORMAL [None]
  - ERYTHEMA [None]
